FAERS Safety Report 7999615-3 (Version None)
Quarter: 2011Q4

REPORT INFORMATION
  Report Type: 
  Country: None (occurrence: None)
  Receive Date: 20111221
  Receipt Date: 20111216
  Transmission Date: 20120403
  Serious: Yes (Death)
  Sender: FDA-Public Use
  Company Number: US-ASTRAZENECA-2011SE76881

PATIENT
  Age: 62 Year
  Sex: Female

DRUGS (18)
  1. AMLODIPINE [Suspect]
  2. METOLAZONE [Suspect]
  3. OMEPRAZOLE [Suspect]
     Route: 065
  4. METFORMIN HCL [Suspect]
  5. IRON [Suspect]
  6. FAMOTIDINE [Suspect]
  7. LOVASTATIN [Suspect]
  8. CLONIDINE [Suspect]
  9. SALICYLATE [Suspect]
  10. GABAPENTIN [Suspect]
  11. ACE  INHIBITOR [Suspect]
  12. FUROSEMIDE [Suspect]
  13. CITALOPRAM [Suspect]
  14. ALBUTEROL [Suspect]
  15. METOPROLOL SUCCINATE EXTENDED RELEASE [Suspect]
  16. INSULIN [Suspect]
  17. FLUTICASONE PROPIONATE/SALMETEROL [Suspect]
  18. DOCUSATE [Suspect]

REACTIONS (1)
  - TOXICITY TO VARIOUS AGENTS [None]
